FAERS Safety Report 25814100 (Version 1)
Quarter: 2025Q3

REPORT INFORMATION
  Report Type: Spontaneous
  Country: US (occurrence: US)
  Receive Date: 20250917
  Receipt Date: 20250917
  Transmission Date: 20251020
  Serious: Yes (Other)
  Sender: AMGEN
  Company Number: US-AMGEN-USASP2025180800

PATIENT
  Age: 19 Year
  Sex: Female

DRUGS (2)
  1. PREDNISONE [Suspect]
     Active Substance: PREDNISONE
     Indication: B-cell type acute leukaemia
     Route: 065
  2. ASPARAGINASE [Suspect]
     Active Substance: ASPARAGINASE
     Indication: B-cell type acute leukaemia
     Route: 065

REACTIONS (5)
  - Steroid diabetes [Unknown]
  - Cerebral venous thrombosis [Unknown]
  - Hypertriglyceridaemia [Recovering/Resolving]
  - Secondary adrenocortical insufficiency [Unknown]
  - Blood glucose decreased [Unknown]
